FAERS Safety Report 8611911 (Version 5)
Quarter: 2013Q4

REPORT INFORMATION
  Report Type: Report from Study
  Country: JP (occurrence: JP)
  Receive Date: 20120613
  Receipt Date: 20131104
  Transmission Date: 20140711
  Serious: Yes (Hospitalization, Other)
  Sender: FDA-Public Use
  Company Number: PHHY2012JP047658

PATIENT
  Age: 32 Year
  Sex: Female

DRUGS (5)
  1. FTY 720 [Suspect]
     Indication: MULTIPLE SCLEROSIS RELAPSE
     Dosage: 0.5 MG, DAILY
     Route: 048
     Dates: start: 20120307, end: 20120404
  2. FTY 720 [Suspect]
     Dosage: 0.25 MG, QOD
     Route: 048
     Dates: start: 20120405, end: 20130524
  3. SOL-MELCORT [Concomitant]
     Dosage: 1000 MG, UNK
     Route: 051
     Dates: start: 201103, end: 201103
  4. SOL-MELCORT [Concomitant]
     Dosage: 1000 MG, UNK
     Route: 051
     Dates: start: 201108, end: 201108
  5. SOL-MELCORT [Concomitant]
     Dosage: 1000 MG, UNK
     Route: 051
     Dates: start: 20120522, end: 20120524

REACTIONS (1)
  - Central nervous system lesion [Recovering/Resolving]
